FAERS Safety Report 8576384-X (Version None)
Quarter: 2012Q3

REPORT INFORMATION
  Report Type: 
  Country: None (occurrence: None)
  Receive Date: 20120807
  Receipt Date: 20120731
  Transmission Date: 20120928
  Serious: Yes (Hospitalization)
  Sender: FDA-Public Use
  Company Number: DE-ROCHE-1052461

PATIENT
  Age: 56 Year
  Sex: Female
  Weight: 93 kg

DRUGS (5)
  1. PEGASYS [Suspect]
     Route: 058
     Dates: start: 20120504
  2. COPEGUS [Suspect]
     Route: 048
     Dates: start: 20120315
  3. TELAPREVIR [Suspect]
     Indication: HEPATITIS C
     Dosage: LAST DOSE PRIOR TO SAE: 19 APR 2012
     Route: 048
     Dates: start: 20120127
  4. PEGASYS [Suspect]
     Indication: HEPATITIS C
     Dosage: LAST DOSE PRIOR TO SAE: 16 MAR 2012
     Route: 058
     Dates: start: 20120127
  5. COPEGUS [Suspect]
     Indication: HEPATITIS C
     Dosage: LAST DOSE PRIOR TO SAE: 14 MAR 2012
     Route: 048
     Dates: start: 20120127

REACTIONS (2)
  - ANAEMIA [None]
  - GENERAL PHYSICAL HEALTH DETERIORATION [None]
